FAERS Safety Report 9350132 (Version 1)
Quarter: 2013Q2

REPORT INFORMATION
  Report Type: Spontaneous
  Country: FR (occurrence: FR)
  Receive Date: 20130616
  Receipt Date: 20130616
  Transmission Date: 20140414
  Serious: Yes (Hospitalization, Other)
  Sender: FDA-Public Use
  Company Number: FR-BRISTOL-MYERS SQUIBB COMPANY-18994319

PATIENT
  Age: 86 Year
  Sex: Female

DRUGS (10)
  1. COUMADIN TABS 2 MG [Suspect]
     Indication: VENTRICULAR ARRHYTHMIA
     Route: 048
     Dates: end: 20130425
  2. CONTRAMAL [Interacting]
     Indication: PAIN
  3. DOLIPRANE [Interacting]
     Indication: PAIN
  4. CORDARONE [Concomitant]
  5. DETENSIEL [Concomitant]
  6. CRESTOR [Concomitant]
  7. DIFFU-K [Concomitant]
  8. LANZOR [Concomitant]
  9. DEROXAT [Concomitant]
  10. OXYNORM [Concomitant]
     Dosage: 0.25 TABLET 2 TO 3 TIMES A DAY

REACTIONS (6)
  - Haematoma [Recovered/Resolved]
  - Drug interaction [Recovered/Resolved]
  - Renal failure acute [Recovered/Resolved]
  - Overdose [Recovered/Resolved]
  - Rhabdomyolysis [Recovered/Resolved]
  - Fall [Recovered/Resolved]
